FAERS Safety Report 8695011 (Version 3)
Quarter: 2012Q4

REPORT INFORMATION
  Report Type: 
  Country: US (occurrence: US)
  Receive Date: 20120731
  Receipt Date: 20121113
  Transmission Date: 20130627
  Serious: No
  Sender: FDA-Public Use
  Company Number: US-ASTRAZENECA-2012SE49738

PATIENT
  Age: 46 Year
  Sex: Male
  Weight: 108.9 kg

DRUGS (1)
  1. NEXIUM [Suspect]
     Indication: GASTROOESOPHAGEAL REFLUX DISEASE
     Route: 048
     Dates: start: 2008

REACTIONS (3)
  - Hypertension [Unknown]
  - Blood cholesterol increased [Unknown]
  - Intentional drug misuse [Unknown]
